FAERS Safety Report 10721688 (Version 1)
Quarter: 2015Q1

REPORT INFORMATION
  Report Type: Spontaneous
  Country: GB (occurrence: GB)
  Receive Date: 20150119
  Receipt Date: 20150119
  Transmission Date: 20150721
  Serious: Yes (Other)
  Sender: FDA-Public Use
  Company Number: GB-PFIZER INC-2015020077

PATIENT
  Age: 65 Year
  Sex: Female
  Weight: 114.3 kg

DRUGS (6)
  1. RIVAROXABAN [Concomitant]
     Active Substance: RIVAROXABAN
     Dosage: UNK
     Route: 065
  2. ATENOLOL. [Suspect]
     Active Substance: ATENOLOL
     Indication: ATRIAL FIBRILLATION
     Dosage: 100 MG, UNK
     Route: 048
  3. ATENOLOL. [Suspect]
     Active Substance: ATENOLOL
     Dosage: 50 MG, UNK
     Route: 048
     Dates: start: 201210
  4. RAMIPRIL. [Concomitant]
     Active Substance: RAMIPRIL
     Dosage: 2.5 MG UNK
  5. BISOPROLOL [Concomitant]
     Active Substance: BISOPROLOL
     Indication: ATRIAL FIBRILLATION
     Dosage: UNK
     Route: 065
     Dates: start: 2010
  6. RAMIPRIL. [Concomitant]
     Active Substance: RAMIPRIL
     Indication: ATRIAL FIBRILLATION
     Dosage: 10 MG, UNK
     Route: 065
     Dates: start: 201005

REACTIONS (3)
  - Blindness transient [Unknown]
  - Glucose tolerance impaired [Unknown]
  - Migraine [Unknown]

NARRATIVE: CASE EVENT DATE: 201405
